FAERS Safety Report 8059753-6 (Version None)
Quarter: 2012Q1

REPORT INFORMATION
  Report Type: 
  Country: None (occurrence: None)
  Receive Date: 20120120
  Receipt Date: 20120117
  Transmission Date: 20120608
  Serious: Yes (Hospitalization)
  Sender: FDA-Public Use
  Company Number: PHHY2011US48235

PATIENT
  Sex: Female

DRUGS (3)
  1. EXJADE [Suspect]
     Dosage: 2000 MG, BID
     Route: 048
     Dates: start: 20110127
  2. EXJADE [Suspect]
     Indication: IRON METABOLISM DISORDER
     Dosage: 1500 MG, DAILY
     Route: 048
     Dates: start: 20110101
  3. EXJADE [Suspect]
     Dosage: 1500 MG, DAILY
     Route: 048

REACTIONS (5)
  - ROAD TRAFFIC ACCIDENT [None]
  - VOMITING [None]
  - NAUSEA [None]
  - VIRAL INFECTION [None]
  - LOWER LIMB FRACTURE [None]
